FAERS Safety Report 24357456 (Version 2)
Quarter: 2024Q4

REPORT INFORMATION
  Report Type: Spontaneous
  Country: IN (occurrence: IN)
  Receive Date: 20240924
  Receipt Date: 20241014
  Transmission Date: 20250115
  Serious: Yes (Hospitalization, Other)
  Sender: TORRENT PHARMA INC.
  Company Number: IN-MLMSERVICE-20240906-PI186737-00291-3

PATIENT
  Age: 78 Year
  Sex: Female

DRUGS (3)
  1. ROSUVASTATIN [Suspect]
     Active Substance: ROSUVASTATIN
     Indication: Coronary artery disease
     Dosage: ROSUVASTATIN 40MG ONCE DAILY
     Route: 065
  2. ASPIRIN [Concomitant]
     Active Substance: ASPIRIN
     Indication: Coronary artery disease
     Dosage: ASPIRIN 75 MG
     Route: 065
  3. TICAGRELOR [Concomitant]
     Active Substance: TICAGRELOR
     Indication: Coronary artery disease
     Dosage: TICAGRELOR 90 MG (BD)
     Route: 065

REACTIONS (4)
  - Metabolic acidosis [Recovering/Resolving]
  - Acute kidney injury [Recovered/Resolved]
  - Liver injury [Recovering/Resolving]
  - Myopathy [Recovered/Resolved]
